FAERS Safety Report 17030330 (Version 2)
Quarter: 2019Q4

REPORT INFORMATION
  Report Type: Spontaneous
  Country: US (occurrence: US)
  Receive Date: 20191114
  Receipt Date: 20191216
  Transmission Date: 20200122
  Serious: No
  Sender: FDA-Public Use
  Company Number: US-JNJFOC-20191109557

PATIENT
  Age: 67 Year
  Sex: Male
  Weight: 152.09 kg

DRUGS (1)
  1. TREMFYA [Suspect]
     Active Substance: GUSELKUMAB
     Indication: PSORIASIS
     Dosage: PRESCRIPTION NUMBER: 154433699635
     Route: 058
     Dates: start: 201906

REACTIONS (4)
  - Off label use [Unknown]
  - Product dose omission [Not Recovered/Not Resolved]
  - Syringe issue [Not Recovered/Not Resolved]
  - Product use issue [Unknown]

NARRATIVE: CASE EVENT DATE: 201906
